FAERS Safety Report 9969667 (Version 1)
Quarter: 2014Q1

REPORT INFORMATION
  Report Type: Spontaneous
  Country: US (occurrence: None)
  Receive Date: 20140304
  Receipt Date: 20140304
  Transmission Date: 20141002
  Serious: Yes (Hospitalization)
  Sender: FDA-Public Use
  Company Number: 2014US003043

PATIENT
  Age: 38 Year
  Sex: Male

DRUGS (18)
  1. PONATINIB (AP24534) TABLET [Suspect]
     Indication: CHRONIC MYELOID LEUKAEMIA
     Route: 048
     Dates: start: 20090923, end: 20140219
  2. LISINOPRIL (LISINOPRIL) [Concomitant]
  3. TEKTURNA (ALISKIREN FUMARATE) [Concomitant]
  4. FERROUS GLUCONATE (FERROUS GLUCONATE) [Concomitant]
  5. LANTUS (INSULIN GLARGINE) [Concomitant]
  6. LANSOPRAZOLE (LANSOPRAZOLE) [Concomitant]
  7. METHADONE (METHADONE) [Concomitant]
  8. TOPAMAX (TOPIRAMATE) [Concomitant]
  9. HYDROCHLOROTHIAZIDE (HYDROCHLOROTHIAZIDE) [Concomitant]
  10. OXYCODONE (OXYCODONE) [Concomitant]
  11. ASPIRIN (ASPIRIN) [Concomitant]
  12. ALDACTONE (POTASSIUM CANRENOATE) [Concomitant]
  13. LABETALOL (LABETALOL) [Concomitant]
  14. AMLODIPINE (AMLODIPINE) [Concomitant]
  15. FENTANYL (FENTANYL CITRATE) [Concomitant]
  16. SKELAXIN (METAXALONE) [Concomitant]
  17. SPIRONOLACTONE (SPIRONOLACTONE) [Concomitant]
  18. CLOPIDOGREL (CLOPIDOGREL) [Concomitant]

REACTIONS (10)
  - Troponin increased [None]
  - Pleural effusion [None]
  - Neutropenia [None]
  - Hypertension [None]
  - Acute myocardial infarction [None]
  - Gallbladder pain [None]
  - Cholecystitis acute [None]
  - Pancreatitis [None]
  - Peripheral arterial occlusive disease [None]
  - Myocardial ischaemia [None]
